FAERS Safety Report 6252050-0 (Version None)
Quarter: 2009Q2

REPORT INFORMATION
  Report Type: 
  Country: None (occurrence: None)
  Receive Date: 20090630
  Receipt Date: 20070930
  Transmission Date: 20091009
  Serious: Yes (Hospitalization)
  Sender: FDA-Public Use
  Company Number: US-ROCHE-638714

PATIENT
  Sex: Male

DRUGS (15)
  1. ENFUVIRTIDE [Suspect]
     Route: 065
     Dates: start: 20060727, end: 20061101
  2. METHAMPHETAMINE [Suspect]
     Indication: DRUG USE FOR UNKNOWN INDICATION
     Route: 065
  3. VIREAD [Concomitant]
     Dates: start: 20030908, end: 20080101
  4. EPZICOM [Concomitant]
     Dates: start: 20060703, end: 20080101
  5. NORVIR [Concomitant]
     Dates: start: 20060703, end: 20061101
  6. PREZISTA [Concomitant]
     Dates: start: 20060703, end: 20061101
  7. KALETRA [Concomitant]
     Dates: start: 20071015, end: 20080101
  8. ISENTRESS [Concomitant]
     Dates: start: 20071024, end: 20080101
  9. ZITHROMAX [Concomitant]
     Dates: start: 20040817
  10. ZITHROMAX [Concomitant]
     Dates: start: 20051117, end: 20080814
  11. DAPSONE [Concomitant]
     Dates: start: 20051117, end: 20080814
  12. CIPRO [Concomitant]
     Dates: start: 20060508, end: 20060518
  13. DIFLUCAN [Concomitant]
     Dates: start: 20060804, end: 20070126
  14. DIFLUCAN [Concomitant]
     Dates: start: 20070221, end: 20071024
  15. DOXYCYCLINE [Concomitant]
     Dates: start: 20060804, end: 20060808

REACTIONS (10)
  - AIDS CHOLANGIOPATHY [None]
  - ANAEMIA [None]
  - ANAL ULCER [None]
  - CRYPTOSPORIDIOSIS INFECTION [None]
  - DEEP VEIN THROMBOSIS [None]
  - DRUG ABUSE [None]
  - GASTROENTERITIS CRYPTOSPORIDIAL [None]
  - OEDEMA PERIPHERAL [None]
  - SCROTAL OEDEMA [None]
  - STAPHYLOCOCCAL BACTERAEMIA [None]
